FAERS Safety Report 7700293-9 (Version None)
Quarter: 2011Q3

REPORT INFORMATION
  Report Type: 
  Country: None (occurrence: None)
  Receive Date: 20110822
  Receipt Date: 20110810
  Transmission Date: 20111222
  Serious: No
  Sender: FDA-Public Use
  Company Number: PHEH2011US01418

PATIENT
  Sex: Female
  Weight: 65.7 kg

DRUGS (19)
  1. ACTIGALL [Concomitant]
  2. BUDESONIDE [Concomitant]
     Dosage: UNK
  3. TASIGNA [Suspect]
     Indication: ACUTE LYMPHOCYTIC LEUKAEMIA
     Dosage: 400 MG, BID
     Route: 048
     Dates: start: 20110209
  4. PRILOSEC [Concomitant]
  5. HYDROMORPHONE HCL [Concomitant]
  6. NEURONTIN [Concomitant]
  7. LORAZEPAM [Concomitant]
  8. SULPHAMETHOXAZOLE [Concomitant]
  9. PREDNISONE [Concomitant]
  10. VALTREX [Concomitant]
  11. MAGNESIUM [Concomitant]
  12. PROZAC [Concomitant]
  13. FLUCONAZOLE [Concomitant]
  14. PROGRAF [Concomitant]
  15. ALPRAZOLAM [Concomitant]
  16. ALBUTEROL SULFATE AUTOHALER [Concomitant]
  17. ACYCLOVIR [Concomitant]
  18. DILTIAZEM [Concomitant]
  19. BECLOMETHASONE DIPROPIONATE [Concomitant]

REACTIONS (1)
  - HEPATIC ENZYME INCREASED [None]
